FAERS Safety Report 4303381-2 (Version None)
Quarter: 2004Q1

REPORT INFORMATION
  Report Type: 
  Country: None (occurrence: None)
  Receive Date: 20040223
  Receipt Date: 20040202
  Transmission Date: 20041129
  Serious: Yes (Hospitalization)
  Sender: FDA-Public Use
  Company Number: A02200400357

PATIENT
  Age: 74 Year
  Sex: Female

DRUGS (2)
  1. PLAQUENIL [Suspect]
     Indication: SYSTEMIC LUPUS ERYTHEMATOSUS
     Dosage: 600 MG QD/400 MG QD, ORAL
     Route: 048
     Dates: start: 20030101
  2. TANAKAN (GINKGO TREE LEAVES EXTRACT) [Concomitant]

REACTIONS (2)
  - HYPERTENSIVE CRISIS [None]
  - OCULAR TOXICITY [None]
